FAERS Safety Report 25451205 (Version 3)
Quarter: 2025Q2

REPORT INFORMATION
  Report Type: Spontaneous
  Country: US (occurrence: US)
  Receive Date: 20250618
  Receipt Date: 20250625
  Transmission Date: 20250717
  Serious: No
  Sender: BIOVITRUM
  Company Number: US-BIOVITRUM-2025-US-008544

PATIENT
  Age: 57 Year
  Sex: Male

DRUGS (1)
  1. VONJO [Suspect]
     Active Substance: PACRITINIB
     Indication: Myelofibrosis
     Route: 048
     Dates: start: 20250611

REACTIONS (8)
  - Urinary tract infection [Recovering/Resolving]
  - Diarrhoea [Unknown]
  - Nausea [Recovering/Resolving]
  - Decreased appetite [Recovering/Resolving]
  - Intentional product misuse [Not Recovered/Not Resolved]
  - White blood cell count increased [Unknown]
  - Blood alkaline phosphatase increased [Unknown]
  - Fatigue [Unknown]

NARRATIVE: CASE EVENT DATE: 20250611
